FAERS Safety Report 7768120-1 (Version None)
Quarter: 2011Q3

REPORT INFORMATION
  Report Type: 
  Country: None (occurrence: None)
  Receive Date: 20110922
  Receipt Date: 20110915
  Transmission Date: 20111222
  Serious: Yes (Other)
  Sender: FDA-Public Use
  Company Number: BR-SANOFI-AVENTIS-2011SA060516

PATIENT
  Age: 55 Year
  Sex: Female
  Weight: 59 kg

DRUGS (5)
  1. LANTUS [Suspect]
     Route: 058
  2. PROPRANOLOL HCL W/HYDROCHLOROTHIAZIDE [Concomitant]
  3. THIAMINE HYDROCHLORIDE [Concomitant]
  4. INSULIN [Suspect]
     Dates: start: 20110101
  5. NOVORAPID [Concomitant]

REACTIONS (7)
  - CONFUSIONAL STATE [None]
  - TACHYCARDIA [None]
  - HYPERGLYCAEMIA [None]
  - BREAST CANCER [None]
  - HYPOGLYCAEMIA [None]
  - HYPERHIDROSIS [None]
  - TREMOR [None]
